FAERS Safety Report 13131471 (Version 2)
Quarter: 2017Q2

REPORT INFORMATION
  Report Type: Spontaneous
  Country: US (occurrence: US)
  Receive Date: 20170119
  Receipt Date: 20170419
  Transmission Date: 20170830
  Serious: No
  Sender: FDA-Public Use
  Company Number: US-PFIZER INC-2017022016

PATIENT
  Age: 5 Month
  Sex: Female
  Weight: 5.9 kg

DRUGS (4)
  1. GENOTROPIN MQ [Suspect]
     Active Substance: SOMATROPIN
     Dosage: 0.2 MG, 1X/DAY
  2. GENOTROPIN MQ [Suspect]
     Active Substance: SOMATROPIN
     Indication: HYPOPITUITARISM
     Dosage: 0.2 MG, 1X/DAY
     Dates: start: 20160629
  3. HYDROCORTISONE. [Concomitant]
     Active Substance: HYDROCORTISONE
     Dosage: QUARTER OF 5MG TABLET THREE TIMES A DAY
     Dates: start: 201606
  4. SYNTHROID [Concomitant]
     Active Substance: LEVOTHYROXINE SODIUM
     Indication: THYROID DISORDER
     Dosage: 25MCG ONCE A DAY
     Dates: start: 201606

REACTIONS (1)
  - Muscle tightness [Recovering/Resolving]

NARRATIVE: CASE EVENT DATE: 201701
